FAERS Safety Report 7747760-X (Version None)
Quarter: 2011Q3

REPORT INFORMATION
  Report Type: 
  Country: None (occurrence: None)
  Receive Date: 20110913
  Receipt Date: 20110906
  Transmission Date: 20111222
  Serious: Yes (Hospitalization)
  Sender: FDA-Public Use
  Company Number: JP-ROCHE-690572

PATIENT
  Sex: Female

DRUGS (44)
  1. ACTEMRA [Suspect]
     Route: 041
     Dates: start: 20091111, end: 20091111
  2. ACTEMRA [Suspect]
     Route: 041
     Dates: start: 20100428, end: 20100428
  3. ACTEMRA [Suspect]
     Route: 041
     Dates: start: 20110202, end: 20110202
  4. ACTEMRA [Suspect]
     Route: 041
     Dates: start: 20110330, end: 20110330
  5. ACTEMRA [Suspect]
     Route: 041
     Dates: start: 20110525, end: 20110525
  6. PREDNISOLONE [Suspect]
     Route: 048
     Dates: start: 20100401
  7. ACTEMRA [Suspect]
     Route: 041
     Dates: start: 20090805, end: 20090805
  8. ACTEMRA [Suspect]
     Route: 041
     Dates: start: 20100106, end: 20100106
  9. ACTEMRA [Suspect]
     Route: 041
     Dates: start: 20100623, end: 20100623
  10. ACTEMRA [Suspect]
     Indication: RHEUMATOID ARTHRITIS
     Route: 041
     Dates: start: 20080813, end: 20080813
  11. ACTEMRA [Suspect]
     Route: 041
     Dates: start: 20090107, end: 20090107
  12. ACTEMRA [Suspect]
     Route: 041
     Dates: start: 20090204, end: 20090204
  13. ACTEMRA [Suspect]
     Route: 041
     Dates: start: 20090527, end: 20090527
  14. ACTEMRA [Suspect]
     Route: 041
     Dates: start: 20100526, end: 20100526
  15. ACTEMRA [Suspect]
     Route: 041
     Dates: start: 20101013, end: 20101013
  16. ACTEMRA [Suspect]
     Route: 041
     Dates: start: 20110622, end: 20110622
  17. ACTEMRA [Suspect]
     Route: 041
     Dates: start: 20110727
  18. ALENDRONATE SODIUM [Concomitant]
     Dosage: DRUG REPORTED AS UNKNOWNDRUG
     Route: 048
  19. ACTEMRA [Suspect]
     Route: 041
     Dates: start: 20080910, end: 20080910
  20. ACTEMRA [Suspect]
     Route: 041
     Dates: start: 20081203, end: 20081203
  21. ACTEMRA [Suspect]
     Route: 041
     Dates: start: 20090428, end: 20090428
  22. ACTEMRA [Suspect]
     Route: 041
     Dates: start: 20100303, end: 20100303
  23. ACTEMRA [Suspect]
     Route: 041
     Dates: start: 20100721, end: 20100721
  24. ACTEMRA [Suspect]
     Route: 041
     Dates: start: 20110105, end: 20110105
  25. CYTOTEC [Concomitant]
     Route: 048
  26. ACTEMRA [Suspect]
     Route: 041
     Dates: start: 20081105, end: 20081105
  27. ACTEMRA [Suspect]
     Route: 041
     Dates: start: 20090304, end: 20090304
  28. ACTEMRA [Suspect]
     Route: 041
     Dates: start: 20090916, end: 20090916
  29. ACTEMRA [Suspect]
     Route: 041
     Dates: start: 20110427, end: 20110427
  30. METHOTREXATE [Suspect]
     Indication: RHEUMATOID ARTHRITIS
     Dosage: DOSE FORM: PERORAL AGENT, DRUG REPORTED AS UNKNOWN DRUG
     Route: 048
     Dates: start: 20090205
  31. DICLOFENAC SODIUM [Concomitant]
     Route: 048
  32. ACTEMRA [Suspect]
     Route: 041
     Dates: start: 20081008, end: 20081008
  33. ACTEMRA [Suspect]
     Route: 041
     Dates: start: 20090401, end: 20090401
  34. ACTEMRA [Suspect]
     Route: 041
     Dates: start: 20091014, end: 20091014
  35. ACTEMRA [Suspect]
     Route: 041
     Dates: start: 20100203, end: 20100203
  36. ACTEMRA [Suspect]
     Route: 041
     Dates: start: 20100331, end: 20100331
  37. ACTEMRA [Suspect]
     Route: 041
     Dates: start: 20110302, end: 20110302
  38. PREDNISOLONE [Suspect]
     Indication: RHEUMATOID ARTHRITIS
     Dosage: DOSE FORM: PERORAL AGENT
     Route: 048
     Dates: end: 20081203
  39. PREDNISOLONE [Suspect]
     Route: 048
     Dates: start: 20100304, end: 20100331
  40. ACTEMRA [Suspect]
     Route: 041
     Dates: start: 20100818, end: 20100818
  41. ACTEMRA [Suspect]
     Route: 041
     Dates: start: 20100915, end: 20100915
  42. ACTEMRA [Suspect]
     Route: 041
     Dates: start: 20101208, end: 20101208
  43. PREDNISOLONE [Suspect]
     Route: 048
     Dates: start: 20081204, end: 20090204
  44. PREDNISOLONE [Suspect]
     Route: 048
     Dates: start: 20090205, end: 20100303

REACTIONS (6)
  - IVTH NERVE PARALYSIS [None]
  - HYPERTENSION [None]
  - HYPERCHOLESTEROLAEMIA [None]
  - ASPARTATE AMINOTRANSFERASE INCREASED [None]
  - UPPER RESPIRATORY TRACT INFLAMMATION [None]
  - ALANINE AMINOTRANSFERASE INCREASED [None]
